FAERS Safety Report 6342556-8 (Version None)
Quarter: 2009Q3

REPORT INFORMATION
  Report Type: 
  Country: None (occurrence: None)
  Receive Date: 20090908
  Receipt Date: 20051114
  Transmission Date: 20100115
  Serious: Yes (Congenital Anomaly)
  Sender: FDA-Public Use
  Company Number: JP-ROCHE-425968

PATIENT
  Sex: Female
  Weight: 3 kg

DRUGS (2)
  1. OSELTAMIVIR [Suspect]
     Indication: INFLUENZA
     Route: 064
     Dates: start: 20050314, end: 20050315
  2. CALONAL [Concomitant]
     Route: 064
     Dates: start: 20050314, end: 20050316

REACTIONS (1)
  - CLEFT LIP AND PALATE [None]
